FAERS Safety Report 15129906 (Version 2)
Quarter: 2018Q3

REPORT INFORMATION
  Report Type: Report from Study
  Country: ZA (occurrence: ZA)
  Receive Date: 20180711
  Receipt Date: 20180716
  Transmission Date: 20181010
  Serious: Yes (Death, Hospitalization, Other)
  Sender: FDA-Public Use
  Company Number: ZA-VIIV HEALTHCARE LIMITED-ZA2018GSK121676

PATIENT
  Age: 0 Year
  Sex: Male
  Weight: 1.02 kg

DRUGS (11)
  1. FOLATE [Concomitant]
     Active Substance: FOLATE SODIUM
  2. CHLORPHENIRAMINE MALEATE. [Concomitant]
     Active Substance: CHLORPHENIRAMINE MALEATE
  3. AMOXICILLIN. [Concomitant]
     Active Substance: AMOXICILLIN
  4. DOLUTEGRAVIR [Suspect]
     Active Substance: DOLUTEGRAVIR
     Dosage: 50 MG, QD
     Dates: start: 20180405
  5. OXYMETAZOLINE [Concomitant]
     Active Substance: OXYMETAZOLINE
  6. FERROUS SULFATE. [Concomitant]
     Active Substance: FERROUS SULFATE
  7. PARACETAMOL [Concomitant]
     Active Substance: ACETAMINOPHEN
  8. EMTRICITABINE + TENOFOVIR [Suspect]
     Active Substance: EMTRICITABINE\TENOFOVIR
     Dosage: 500 MG, QD
     Dates: start: 20180405
  9. METRONIDAZOLE. [Concomitant]
     Active Substance: METRONIDAZOLE
  10. CLOTRIMAZOLE. [Concomitant]
     Active Substance: CLOTRIMAZOLE
  11. CALCIUM [Concomitant]
     Active Substance: CALCIUM

REACTIONS (2)
  - Stillbirth [Fatal]
  - Foetal death [Fatal]

NARRATIVE: CASE EVENT DATE: 20180630
